FAERS Safety Report 7984779-8 (Version None)
Quarter: 2011Q4

REPORT INFORMATION
  Report Type: 
  Country: None (occurrence: None)
  Receive Date: 20111214
  Receipt Date: 20111209
  Transmission Date: 20120403
  Serious: Yes (Other)
  Sender: FDA-Public Use
  Company Number: GER/UKI/11/0022287

PATIENT
  Sex: Female

DRUGS (2)
  1. VESICARE [Suspect]
     Indication: HYPERTONIC BLADDER
     Dosage: 5 MG, 1 IN 1 D
  2. FLUOXETINE HYDROCHLORIDE [Suspect]
     Indication: PRODUCT USED FOR UNKNOWN INDICATION
     Dosage: 3 MG, 1 IN 1 D, ORAL; 1 IN 1 D
     Route: 048

REACTIONS (5)
  - DRY SKIN [None]
  - URTICARIA [None]
  - PRURITUS [None]
  - MALAISE [None]
  - ACNE [None]
